FAERS Safety Report 16536870 (Version 1)
Quarter: 2019Q3

REPORT INFORMATION
  Report Type: Spontaneous
  Country: US (occurrence: US)
  Receive Date: 20190707
  Receipt Date: 20190707
  Transmission Date: 20191004
  Serious: Yes (Other)
  Sender: FDA-Public Use
  Company Number: US-AMGEN-USASP2019105264

PATIENT
  Age: 65 Year
  Sex: Female

DRUGS (1)
  1. PROLIA [Suspect]
     Active Substance: DENOSUMAB
     Indication: OSTEOPOROSIS POSTMENOPAUSAL
     Dosage: 60 MILLIGRAM
     Route: 065
     Dates: start: 201905

REACTIONS (4)
  - Abnormal clotting factor [Unknown]
  - Eye haemorrhage [Not Recovered/Not Resolved]
  - Headache [Unknown]
  - Haematocrit increased [Unknown]

NARRATIVE: CASE EVENT DATE: 201906
